FAERS Safety Report 5798343-2 (Version None)
Quarter: 2008Q3

REPORT INFORMATION
  Report Type: 
  Country: None (occurrence: None)
  Receive Date: 20080702
  Receipt Date: 20080625
  Transmission Date: 20090109
  Serious: Yes (Other)
  Sender: FDA-Public Use
  Company Number: US-BAYER-200811994BCC

PATIENT
  Age: 50 Year
  Sex: Female
  Weight: 78 kg

DRUGS (8)
  1. ASPIRIN [Suspect]
     Indication: ARTHRALGIA
     Route: 048
     Dates: start: 19730101
  2. AVELOX [Suspect]
     Indication: DRUG USE FOR UNKNOWN INDICATION
     Route: 048
  3. FUROSEMIDE [Concomitant]
  4. PLAVIX [Concomitant]
  5. NEXIUM [Concomitant]
  6. SYNTHROID [Concomitant]
  7. TRAMADOL HCL [Concomitant]
  8. ALLEGRA [Concomitant]

REACTIONS (25)
  - AMNESIA [None]
  - ANAPHYLACTIC SHOCK [None]
  - BLOOD CHOLESTEROL INCREASED [None]
  - BREAST CANCER [None]
  - CARPAL TUNNEL DECOMPRESSION [None]
  - CEREBROVASCULAR ACCIDENT [None]
  - CONTUSION [None]
  - DIABETES MELLITUS [None]
  - DIPLOPIA [None]
  - GALLBLADDER OPERATION [None]
  - GASTRIC ULCER [None]
  - HEADACHE [None]
  - INTERVERTEBRAL DISC OPERATION [None]
  - LOCAL SWELLING [None]
  - ROTATOR CUFF SYNDROME [None]
  - SKIN BACTERIAL INFECTION [None]
  - STAPHYLOCOCCAL INFECTION [None]
  - SWELLING FACE [None]
  - SYNOVIAL CYST [None]
  - TACHYCARDIA [None]
  - TENDONITIS [None]
  - THROAT TIGHTNESS [None]
  - TRANSIENT ISCHAEMIC ATTACK [None]
  - UPPER EXTREMITY MASS [None]
  - URTICARIA [None]
